FAERS Safety Report 8973399 (Version 1)
Quarter: 2012Q4

REPORT INFORMATION
  Report Type: 
  Country: IT (occurrence: IT)
  Receive Date: 20121218
  Receipt Date: 20121218
  Transmission Date: 20130627
  Serious: Yes (Hospitalization)
  Sender: FDA-Public Use
  Company Number: IT-TEVA-376125ISR

PATIENT
  Age: 64 Year
  Sex: Female

DRUGS (3)
  1. CARBOLITHIUM [Suspect]
     Indication: INTENTIONAL SELF-INJURY
     Dosage: 60 Dosage forms Daily;
     Route: 048
     Dates: start: 20121209, end: 20121209
  2. TRIAZOLAM [Suspect]
     Indication: INTENTIONAL SELF-INJURY
     Dosage: 10 Dosage forms Daily;
     Route: 048
     Dates: start: 20121209, end: 20121209
  3. ENALAPRIL [Suspect]
     Indication: INTENTIONAL SELF-INJURY
     Dosage: 14 Dosage forms Daily;
     Route: 048
     Dates: start: 20121209, end: 20121209

REACTIONS (5)
  - Intentional self-injury [Recovering/Resolving]
  - Drug abuse [Recovering/Resolving]
  - Sopor [Recovering/Resolving]
  - Bradykinesia [Recovering/Resolving]
  - Bradyphrenia [Recovering/Resolving]
